FAERS Safety Report 20207146 (Version 1)
Quarter: 2021Q4

REPORT INFORMATION
  Report Type: Spontaneous
  Country: US (occurrence: None)
  Receive Date: 20211218
  Receipt Date: 20211218
  Transmission Date: 20220304
  Serious: No
  Sender: FDA-Public Use
  Company Number: None

PATIENT
  Age: 64 Year
  Sex: Female
  Weight: 67.9 kg

DRUGS (2)
  1. BEVACIZUMAB [Suspect]
     Active Substance: BEVACIZUMAB
  2. DOXIL [Suspect]
     Active Substance: DOXORUBICIN HYDROCHLORIDE

REACTIONS (3)
  - Anxiety [None]
  - Hypertension [None]
  - Abdominal pain [None]

NARRATIVE: CASE EVENT DATE: 20211203
